FAERS Safety Report 23746252 (Version 1)
Quarter: 2024Q2

REPORT INFORMATION
  Report Type: Spontaneous
  Country: PL (occurrence: PL)
  Receive Date: 20240416
  Receipt Date: 20240416
  Transmission Date: 20240716
  Serious: Yes (Life-Threatening, Hospitalization, Other)
  Sender: FDA-Public Use
  Company Number: PL-CELLTRION INC.-2024PL008754

PATIENT

DRUGS (3)
  1. INFLIXIMAB [Suspect]
     Active Substance: INFLIXIMAB
     Indication: Crohn^s disease
     Dosage: 350 MG
     Route: 042
     Dates: start: 20180302
  2. CORHYDRON [HYDROCORTISONE] [Concomitant]
  3. MESALAMINE [Concomitant]
     Active Substance: MESALAMINE

REACTIONS (4)
  - Oxygen saturation decreased [Recovering/Resolving]
  - Anaphylactic shock [Recovering/Resolving]
  - Bronchospasm [Recovering/Resolving]
  - Underdose [Unknown]

NARRATIVE: CASE EVENT DATE: 20180302
